FAERS Safety Report 7597205-8 (Version None)
Quarter: 2011Q3

REPORT INFORMATION
  Report Type: 
  Country: None (occurrence: None)
  Receive Date: 20110708
  Receipt Date: 20100913
  Transmission Date: 20111222
  Serious: No
  Sender: FDA-Public Use
  Company Number: US-GLAXOSMITHKLINE-A0880844A

PATIENT
  Age: 79 Year
  Sex: Male

DRUGS (12)
  1. DIVALPROEX SODIUM [Concomitant]
  2. SIMVASTATIN [Concomitant]
  3. HYDROCHLOROTHIAZIDE [Concomitant]
  4. SPIRIVA [Concomitant]
  5. THEOPHYLLINE [Concomitant]
  6. PIPERACILLIN AND TAZOBACTAM [Concomitant]
  7. FLUNISOLIDE [Concomitant]
  8. ALBUTEROL SULFATE AUTOHALER [Concomitant]
  9. FORADIL [Concomitant]
  10. FLOVENT [Suspect]
     Indication: ASTHMA
     Dosage: 2PUFF TWICE PER DAY
     Route: 055
     Dates: start: 20100601
  11. RANITIDINE [Concomitant]
  12. LOSARTAN POTASSIUM [Concomitant]

REACTIONS (4)
  - UPPER RESPIRATORY TRACT INFECTION [None]
  - PRODUCT QUALITY ISSUE [None]
  - INCREASED UPPER AIRWAY SECRETION [None]
  - COUGH [None]
